FAERS Safety Report 14162985 (Version 26)
Quarter: 2019Q3

REPORT INFORMATION
  Report Type: Report from Study
  Country: CA (occurrence: CA)
  Receive Date: 20171107
  Receipt Date: 20190813
  Transmission Date: 20191004
  Serious: Yes (Other)
  Sender: FDA-Public Use
  Company Number: CA-ROCHE-1837378

PATIENT
  Age: 58 Year
  Sex: Female
  Weight: 141 kg

DRUGS (11)
  1. ACTEMRA [Suspect]
     Active Substance: TOCILIZUMAB
     Dosage: 18 INFUSION
     Route: 042
     Dates: start: 20171221
  2. ACTEMRA [Suspect]
     Active Substance: TOCILIZUMAB
     Dosage: 23 RD INFUSION
     Route: 042
     Dates: start: 20180510
  3. SULFASALAZINE. [Concomitant]
     Active Substance: SULFASALAZINE
  4. TERAZOSIN [Concomitant]
     Active Substance: TERAZOSIN HYDROCHLORIDE
  5. ACTEMRA [Suspect]
     Active Substance: TOCILIZUMAB
     Dosage: 24 TH INFUSION
     Route: 042
     Dates: start: 20180607
  6. ACTEMRA [Suspect]
     Active Substance: TOCILIZUMAB
     Route: 042
     Dates: start: 20170609
  7. ACTEMRA [Suspect]
     Active Substance: TOCILIZUMAB
     Indication: RHEUMATOID ARTHRITIS
     Dosage: DATE OF TOCILIZUMAB INFUSIONS- 03/JAN/2018, 18/JAN/2018, 15/FEB/2018
     Route: 042
     Dates: start: 20160901
  8. ESOMEPRAZOLE. [Concomitant]
     Active Substance: ESOMEPRAZOLE MAGNESIUM
  9. ACEBUTOLOL [Concomitant]
     Active Substance: ACEBUTOLOL
  10. HYZAAR [Concomitant]
     Active Substance: HYDROCHLOROTHIAZIDE\LOSARTAN POTASSIUM
  11. DIAZEPAM. [Concomitant]
     Active Substance: DIAZEPAM

REACTIONS (31)
  - Hypothyroidism [Not Recovered/Not Resolved]
  - Weight increased [Unknown]
  - Blood pressure systolic abnormal [Unknown]
  - Nausea [Recovered/Resolved]
  - Heart rate increased [Unknown]
  - Acne [Not Recovered/Not Resolved]
  - Skin disorder [Unknown]
  - Arthralgia [Not Recovered/Not Resolved]
  - Depression [Not Recovered/Not Resolved]
  - Rash [Unknown]
  - Vaginal infection [Recovered/Resolved]
  - Anxiety [Unknown]
  - Arthralgia [Unknown]
  - Vaginal infection [Recovering/Resolving]
  - Fatigue [Recovered/Resolved]
  - Haemorrhoidal haemorrhage [Recovered/Resolved]
  - Back pain [Recovering/Resolving]
  - Fatigue [Not Recovered/Not Resolved]
  - Dizziness [Unknown]
  - Disability assessment scale score increased [Recovering/Resolving]
  - Blood pressure increased [Unknown]
  - Stress [Unknown]
  - Blood pressure systolic increased [Unknown]
  - Drug ineffective [Unknown]
  - Limb injury [Unknown]
  - Rheumatoid arthritis [Not Recovered/Not Resolved]
  - Malaise [Not Recovered/Not Resolved]
  - Infusion related reaction [Unknown]
  - Gastrooesophageal reflux disease [Unknown]
  - Oxygen saturation decreased [Unknown]
  - Headache [Recovered/Resolved]

NARRATIVE: CASE EVENT DATE: 20160929
